FAERS Safety Report 12742137 (Version 1)
Quarter: 2016Q3

REPORT INFORMATION
  Report Type: Spontaneous
  Country: US (occurrence: US)
  Receive Date: 20160914
  Receipt Date: 20160914
  Transmission Date: 20161109
  Serious: Yes (Disabling)
  Sender: FDA-Public Use
  Company Number: None

PATIENT
  Age: 43 Year
  Sex: Male
  Weight: 117.9 kg

DRUGS (10)
  1. DAYPRO [Concomitant]
     Active Substance: OXAPROZIN
  2. LEXAPRO [Concomitant]
     Active Substance: ESCITALOPRAM OXALATE
  3. MVI [Concomitant]
     Active Substance: VITAMINS
  4. ATENOLOL. [Concomitant]
     Active Substance: ATENOLOL
  5. FISH OIL [Concomitant]
     Active Substance: FISH OIL
  6. CRESTOR [Suspect]
     Active Substance: ROSUVASTATIN CALCIUM
     Indication: BLOOD CHOLESTEROL INCREASED
     Route: 048
     Dates: start: 20121211, end: 20150202
  7. ZOCOR [Suspect]
     Active Substance: SIMVASTATIN
     Indication: BLOOD CHOLESTEROL INCREASED
     Route: 048
     Dates: start: 20111212, end: 20121211
  8. CO-Q10 [Concomitant]
  9. GLUCOSAMIN/CHONDROITON/MSM COMPLEX [Concomitant]
  10. ZESTORETIC 20/12.5 [Concomitant]

REACTIONS (3)
  - Muscular weakness [None]
  - Osteoarthritis [None]
  - Musculoskeletal pain [None]

NARRATIVE: CASE EVENT DATE: 20150202
